FAERS Safety Report 24690638 (Version 2)
Quarter: 2024Q4

REPORT INFORMATION
  Report Type: Spontaneous
  Country: JP (occurrence: JP)
  Receive Date: 20241203
  Receipt Date: 20241214
  Transmission Date: 20250114
  Serious: No
  Sender: AMGEN
  Company Number: JP-AMGEN-JPNSP2024234872

PATIENT

DRUGS (1)
  1. AIMOVIG [Suspect]
     Active Substance: ERENUMAB\ERENUMAB-AOOE
     Indication: Product used for unknown indication
     Dosage: 70 MILLIGRAM
     Route: 058

REACTIONS (1)
  - Injection site haemorrhage [Recovered/Resolved]
